FAERS Safety Report 10343409 (Version 1)
Quarter: 2014Q3

REPORT INFORMATION
  Report Type: Spontaneous
  Country: GB (occurrence: GB)
  Receive Date: 20140725
  Receipt Date: 20140725
  Transmission Date: 20150326
  Serious: Yes (Other)
  Sender: FDA-Public Use
  Company Number: GB-ASTRAZENECA-2014SE52554

PATIENT
  Age: 55 Year
  Sex: Male
  Weight: 82 kg

DRUGS (2)
  1. ACCORD HEALTHCARE AMLODIPINE [Concomitant]
  2. LISINOPRIL. [Suspect]
     Active Substance: LISINOPRIL
     Indication: HYPERTENSION
     Route: 048
     Dates: start: 20140530, end: 20140705

REACTIONS (3)
  - Joint swelling [Not Recovered/Not Resolved]
  - Activities of daily living impaired [Unknown]
  - Headache [Unknown]

NARRATIVE: CASE EVENT DATE: 20140530
